FAERS Safety Report 7722057-2 (Version None)
Quarter: 2011Q3

REPORT INFORMATION
  Report Type: 
  Country: None (occurrence: None)
  Receive Date: 20110831
  Receipt Date: 20110825
  Transmission Date: 20111222
  Serious: Yes (Hospitalization)
  Sender: FDA-Public Use
  Company Number: US-ABBOTT-11P-163-0849524-00

PATIENT
  Sex: Female
  Weight: 55.388 kg

DRUGS (28)
  1. FERROUS SULFATE TAB [Concomitant]
     Indication: MINERAL SUPPLEMENTATION
  2. HYPERTONIC SALINE SOLUTION [Concomitant]
     Indication: LUNG DISORDER
  3. OMEPRAZOLE [Concomitant]
     Indication: GASTROOESOPHAGEAL REFLUX DISEASE
  4. SERTRALINE HYDROCHLORIDE [Concomitant]
     Indication: DEPRESSION
  5. AQUADEK [Concomitant]
     Indication: VITAMIN SUPPLEMENTATION
  6. HUMALOG [Concomitant]
     Indication: DIABETES MELLITUS
  7. PRAVASTATIN [Concomitant]
     Indication: BLOOD CHOLESTEROL INCREASED
  8. SODIUM BICARBONATE [Concomitant]
     Indication: RENAL TUBULAR ACIDOSIS
  9. CREON [Suspect]
     Indication: CYSTIC FIBROSIS
     Route: 048
  10. CALCIUM CARBONATE [Concomitant]
     Indication: MINERAL SUPPLEMENTATION
  11. DILTIAZEM [Concomitant]
     Indication: HYPERTENSION
  12. ADVAIR DISKUS 100/50 [Concomitant]
     Indication: LUNG DISORDER
  13. FOLIC ACID [Concomitant]
     Indication: VITAMIN SUPPLEMENTATION
  14. MYCOPHENALATE [Concomitant]
     Indication: IMMUNOSUPPRESSANT DRUG THERAPY
  15. PROPRANOLOL [Concomitant]
     Indication: HYPERTENSION
  16. ASCORBIC ACID [Concomitant]
     Indication: VITAMIN SUPPLEMENTATION
  17. ALBUTEROL SULFATE AUTOHALER [Concomitant]
     Indication: LUNG DISORDER
  18. AXTREONAM [Concomitant]
     Indication: LUNG INFECTION
  19. MYCOPHENALATE [Concomitant]
     Indication: TRANSPLANT
  20. PREDNISONE [Concomitant]
     Indication: TRANSPLANT
  21. HYDRALAZINE HCL [Concomitant]
     Indication: HYPERTENSION
  22. VORICONAZOLE [Concomitant]
     Indication: FUNGAL INFECTION
  23. ALENDRONATE SODIUM [Concomitant]
     Indication: OSTEOPENIA
  24. CYCLOSPORINE [Concomitant]
     Indication: TRANSPLANT
  25. LOSARTAN [Concomitant]
     Indication: HYPERTENSION
  26. MAGNESIUM OXIDE [Concomitant]
     Indication: TRANSPLANT
  27. ZITHROMYCIN [Concomitant]
     Indication: TRANSPLANT
  28. FUROSEMIDE [Concomitant]
     Indication: RENAL DISORDER

REACTIONS (9)
  - DRUG INEFFECTIVE [None]
  - WEIGHT DECREASED [None]
  - DIARRHOEA [None]
  - GASTROINTESTINAL DISORDER [None]
  - STEATORRHOEA [None]
  - CLOSTRIDIAL INFECTION [None]
  - NEPHROPATHY [None]
  - DYSPNOEA [None]
  - LUNG INFECTION [None]
